FAERS Safety Report 13013052 (Version 1)
Quarter: 2016Q4

REPORT INFORMATION
  Report Type: Spontaneous
  Country: US (occurrence: US)
  Receive Date: 20161208
  Receipt Date: 20161208
  Transmission Date: 20170207
  Serious: Yes (Disabling)
  Sender: FDA-Public Use
  Company Number: None

PATIENT
  Age: 59 Year
  Sex: Female
  Weight: 71.55 kg

DRUGS (12)
  1. CIPRO [Suspect]
     Active Substance: CIPROFLOXACIN HYDROCHLORIDE
     Indication: PRIMARY CILIARY DYSKINESIA
     Route: 048
  2. BUDESONIDE. [Concomitant]
     Active Substance: BUDESONIDE
  3. PERFOROMIST [Concomitant]
     Active Substance: FORMOTEROL FUMARATE DIHYDRATE
  4. DEXILANT [Concomitant]
     Active Substance: DEXLANSOPRAZOLE
  5. ZOLOFT [Concomitant]
     Active Substance: SERTRALINE HYDROCHLORIDE
  6. LEVAQUIN [Suspect]
     Active Substance: LEVOFLOXACIN
     Indication: PRIMARY CILIARY DYSKINESIA
  7. WELLBUTRIN [Concomitant]
     Active Substance: BUPROPION HYDROCHLORIDE
  8. AMBIEN [Concomitant]
     Active Substance: ZOLPIDEM TARTRATE
  9. ALBUTEROL. [Concomitant]
     Active Substance: ALBUTEROL
  10. CRESTOR GENERIC [Concomitant]
     Active Substance: ROSUVASTATIN CALCIUM
  11. VEST FOR AIRWAY CLEARANCE [Concomitant]
  12. PROPANOLOL [Concomitant]
     Active Substance: PROPRANOLOL HYDROCHLORIDE

REACTIONS (5)
  - Drug hypersensitivity [None]
  - Confusional state [None]
  - Anxiety [None]
  - Rash [None]
  - Arthralgia [None]
